FAERS Safety Report 7728780-8 (Version None)
Quarter: 2011Q3

REPORT INFORMATION
  Report Type: 
  Country: None (occurrence: None)
  Receive Date: 20110906
  Receipt Date: 20110823
  Transmission Date: 20111222
  Serious: Yes (Hospitalization)
  Sender: FDA-Public Use
  Company Number: DE-ELI_LILLY_AND_COMPANY-DE201108006838

PATIENT
  Sex: Female

DRUGS (4)
  1. FORTEO [Suspect]
     Indication: OSTEOPOROSIS
     Dosage: UNK, QD
     Route: 058
     Dates: start: 20110613, end: 20110808
  2. MARCUMAR [Concomitant]
  3. BISOPROLOL FUMARATE [Concomitant]
  4. LISIHEXAL [Concomitant]

REACTIONS (2)
  - BACTERIAL INFECTION [None]
  - ANAEMIA [None]
